FAERS Safety Report 16582902 (Version 5)
Quarter: 2019Q4

REPORT INFORMATION
  Report Type: Spontaneous
  Country: JP (occurrence: JP)
  Receive Date: 20190717
  Receipt Date: 20191025
  Transmission Date: 20200122
  Serious: Yes (Other)
  Sender: FDA-Public Use
  Company Number: JP-TEVA-2019-JP-1074773

PATIENT
  Age: 71 Year
  Sex: Female

DRUGS (4)
  1. BENDAMUSTINE HYDROCHLORIDE. [Suspect]
     Active Substance: BENDAMUSTINE HYDROCHLORIDE
     Indication: LYMPHOMA
     Dosage: 90 MG/M2, ONCE DAILY (CYCLIC)
     Route: 042
     Dates: start: 20190509, end: 20190510
  2. RITUXIMAB. [Suspect]
     Active Substance: RITUXIMAB
     Indication: LYMPHOMA
     Dosage: 375 MG/M2, ONCE DAILY (CYCLIC)
     Route: 041
     Dates: start: 20190430
  3. RITUXIMAB. [Suspect]
     Active Substance: RITUXIMAB
     Dosage: 375 MG/M2, ONCE DAILY (CYCLIC)
     Route: 041
     Dates: start: 20190604
  4. RITUXIMAB. [Suspect]
     Active Substance: RITUXIMAB
     Dosage: 375 MG/M2, ONCE DAILY (CYCLIC)
     Route: 041
     Dates: start: 20190702

REACTIONS (2)
  - Liver disorder [Recovered/Resolved]
  - Product use in unapproved indication [Unknown]

NARRATIVE: CASE EVENT DATE: 20190509
